FAERS Safety Report 10407545 (Version 1)
Quarter: 2014Q3

REPORT INFORMATION
  Report Type: Spontaneous
  Country: US (occurrence: US)
  Receive Date: 20140825
  Receipt Date: 20140825
  Transmission Date: 20150326
  Serious: Yes (Other)
  Sender: FDA-Public Use
  Company Number: US-PFIZER INC-2014232611

PATIENT
  Sex: Female

DRUGS (2)
  1. ZYVOX [Suspect]
     Active Substance: LINEZOLID
     Dosage: UNK
  2. ZYVOX [Suspect]
     Active Substance: LINEZOLID
     Dosage: UNK

REACTIONS (14)
  - Monoplegia [Not Recovered/Not Resolved]
  - Muscle spasms [Not Recovered/Not Resolved]
  - Joint swelling [Not Recovered/Not Resolved]
  - Tension [Not Recovered/Not Resolved]
  - General physical health deterioration [Not Recovered/Not Resolved]
  - Abnormal behaviour [Not Recovered/Not Resolved]
  - Erythema [Not Recovered/Not Resolved]
  - Myalgia [Not Recovered/Not Resolved]
  - Chest pain [Not Recovered/Not Resolved]
  - Pain [Not Recovered/Not Resolved]
  - Gait disturbance [Not Recovered/Not Resolved]
  - Blood pressure abnormal [Not Recovered/Not Resolved]
  - Abdominal distension [Not Recovered/Not Resolved]
  - Hypoaesthesia [Not Recovered/Not Resolved]
